FAERS Safety Report 10261907 (Version 1)
Quarter: 2014Q2

REPORT INFORMATION
  Report Type: Spontaneous
  Country: CH (occurrence: CH)
  Receive Date: 20140626
  Receipt Date: 20140626
  Transmission Date: 20141212
  Serious: Yes (Other)
  Sender: FDA-Public Use
  Company Number: CH-ROXANE LABORATORIES, INC.-2014-RO-00968RO

PATIENT
  Age: 75 Year
  Sex: Male

DRUGS (9)
  1. PREDNISONE [Suspect]
     Indication: WALDENSTROM^S MACROGLOBULINAEMIA
     Route: 065
  2. CYCLOPHOSPHAMIDE TABLETS USP [Suspect]
     Indication: WALDENSTROM^S MACROGLOBULINAEMIA
     Route: 065
     Dates: start: 2007
  3. CHLORAMBUCIL [Suspect]
     Indication: WALDENSTROM^S MACROGLOBULINAEMIA
     Route: 065
  4. RITUXIMAB [Suspect]
     Indication: WALDENSTROM^S MACROGLOBULINAEMIA
     Route: 065
     Dates: start: 2006
  5. FLUDARABINE [Suspect]
     Indication: WALDENSTROM^S MACROGLOBULINAEMIA
     Route: 065
     Dates: start: 2006
  6. ADRIAMYCIN [Suspect]
     Indication: HODGKIN^S DISEASE STAGE II
     Route: 065
     Dates: start: 2009
  7. BLEOMYCIN [Suspect]
     Indication: HODGKIN^S DISEASE STAGE II
     Route: 065
     Dates: start: 2009
  8. VINBLASTINE [Suspect]
     Indication: HODGKIN^S DISEASE STAGE II
     Route: 065
     Dates: start: 2009
  9. DACARBAZINE [Suspect]
     Indication: HODGKIN^S DISEASE STAGE II
     Route: 065
     Dates: start: 2009

REACTIONS (4)
  - Secondary immunodeficiency [Unknown]
  - Hodgkin^s disease stage II [Unknown]
  - Rhodococcus infection [Recovered/Resolved]
  - Pneumonia [Recovered/Resolved]
